FAERS Safety Report 4447674-7 (Version None)
Quarter: 2004Q3

REPORT INFORMATION
  Report Type: 
  Country: None (occurrence: None)
  Receive Date: 20040913
  Receipt Date: 20040907
  Transmission Date: 20050211
  Serious: Yes (Death, Other)
  Sender: FDA-Public Use
  Company Number: PHBS2004US11911

PATIENT
  Sex: Female

DRUGS (11)
  1. CYCLOSPORINE [Suspect]
     Indication: STEM CELL TRANSPLANT
     Dosage: UNK, UNK
     Route: 065
  2. CYCLOSPORINE [Suspect]
     Dosage: UNK, UNK
     Route: 065
  3. VORICONAZOLE [Concomitant]
     Indication: ANTIFUNGAL PROPHYLAXIS
     Dosage: 200 MG, BID
     Route: 048
  4. VORICONAZOLE [Concomitant]
     Dosage: 200 MG, QD
     Route: 048
  5. LEVOFLOXACIN [Concomitant]
     Indication: FEBRILE NEUTROPENIA
  6. AZTREONAM [Concomitant]
     Indication: FEBRILE NEUTROPENIA
  7. VANCOMYCIN [Concomitant]
     Indication: FEBRILE NEUTROPENIA
  8. MYCOPHENOLATE MOFETIL [Concomitant]
  9. SOLU-MEDROL [Concomitant]
     Dosage: 1 MG/KG, BID
  10. VORICONAZOLE [Concomitant]
     Indication: CANDIDIASIS
     Dosage: 270 MG, BID
     Route: 042
  11. ATGAM [Concomitant]
     Dosage: 30 MG/KG/DAY

REACTIONS (9)
  - CANDIDIASIS [None]
  - CYTOMEGALOVIRUS INFECTION [None]
  - DIARRHOEA [None]
  - GRAFT VERSUS HOST DISEASE [None]
  - MENTAL STATUS CHANGES [None]
  - PNEUMONIA FUNGAL [None]
  - PYREXIA [None]
  - RASH MACULO-PAPULAR [None]
  - ZYGOMYCOSIS [None]
